FAERS Safety Report 4393263-2 (Version None)
Quarter: 2004Q3

REPORT INFORMATION
  Report Type: 
  Country: None (occurrence: None)
  Receive Date: 20040701
  Receipt Date: 20040614
  Transmission Date: 20050211
  Serious: Yes (Life-Threatening)
  Sender: FDA-Public Use
  Company Number: FR_040604284

PATIENT
  Age: 80 Year
  Sex: Male

DRUGS (5)
  1. PERGOLIDE MESYLATE [Suspect]
     Indication: PARKINSON'S DISEASE
     Dosage: 1.5 MG/1 DAY
     Dates: end: 20040412
  2. MODOPAR [Concomitant]
  3. DIGOXIN [Concomitant]
  4. ALDACTONE [Concomitant]
  5. ENALAPRIL MALEATE [Concomitant]

REACTIONS (4)
  - DYSPHONIA [None]
  - LARYNGEAL DYSPNOEA [None]
  - RESPIRATORY DISTRESS [None]
  - VOCAL CORD PARALYSIS [None]
